FAERS Safety Report 16134862 (Version 1)
Quarter: 2019Q1

REPORT INFORMATION
  Report Type: Spontaneous
  Country: PL (occurrence: PL)
  Receive Date: 20190329
  Receipt Date: 20190329
  Transmission Date: 20190418
  Serious: Yes (Other)
  Sender: FDA-Public Use
  Company Number: PL-SEPTODONT-201905135

PATIENT
  Age: 47 Year
  Sex: Female
  Weight: 85 kg

DRUGS (1)
  1. SEPTANEST 1:100 000 [Suspect]
     Active Substance: ARTICAINE HYDROCHLORIDE\EPINEPHRINE BITARTRATE
     Indication: DENTAL LOCAL ANAESTHESIA
     Dosage: 1/6 OF CARTRIDGES BY INFILTRATION
     Route: 004
     Dates: start: 20190312, end: 20190312

REACTIONS (6)
  - Hypertension [Unknown]
  - Muscle spasms [Unknown]
  - Syncope [Unknown]
  - Pallor [Unknown]
  - Angina pectoris [Unknown]
  - Arrhythmia [Unknown]

NARRATIVE: CASE EVENT DATE: 20190312
